FAERS Safety Report 4489031-3 (Version None)
Quarter: 2004Q4

REPORT INFORMATION
  Report Type: 
  Country: None (occurrence: None)
  Receive Date: 20041026
  Receipt Date: 20041013
  Transmission Date: 20050328
  Serious: Yes (Hospitalization)
  Sender: FDA-Public Use
  Company Number: FR_041005005

PATIENT
  Age: 79 Year
  Sex: Female

DRUGS (2)
  1. PROZAC [Suspect]
     Indication: DEPRESSION
  2. ARICEPT [Concomitant]

REACTIONS (3)
  - ANTIBODY TEST POSITIVE [None]
  - PEMPHIGUS [None]
  - RASH [None]
